FAERS Safety Report 20332521 (Version 1)
Quarter: 2022Q1

REPORT INFORMATION
  Report Type: Spontaneous
  Country: US (occurrence: None)
  Receive Date: 20220113
  Receipt Date: 20220113
  Transmission Date: 20220424
  Serious: No
  Sender: FDA-Public Use
  Company Number: None

PATIENT
  Age: 83 Year
  Sex: Male
  Weight: 81.9 kg

DRUGS (19)
  1. TRELEGY ELLIPTA [Suspect]
     Active Substance: FLUTICASONE FUROATE\UMECLIDINIUM BROMIDE\VILANTEROL TRIFENATATE
     Indication: Asthma
     Dosage: OTHER STRENGTH : 100MCG/62.5MCG/25M;?OTHER QUANTITY : 1 INHALATION(S);?
     Route: 055
     Dates: start: 20200731, end: 20220103
  2. PRADAXA [Concomitant]
     Active Substance: DABIGATRAN ETEXILATE MESYLATE
  3. COZAAR [Concomitant]
     Active Substance: LOSARTAN POTASSIUM
  4. ALLOPURINOL [Concomitant]
     Active Substance: ALLOPURINOL
  5. HYDROCHLOROTHIAZIDE [Concomitant]
     Active Substance: HYDROCHLOROTHIAZIDE
  6. PROSCAR [Concomitant]
     Active Substance: FINASTERIDE
  7. ATORVASTATIN CALCIUM [Concomitant]
     Active Substance: ATORVASTATIN CALCIUM
  8. HYDROCODONE [Concomitant]
     Active Substance: HYDROCODONE
  9. NITROGLYCERIN [Concomitant]
     Active Substance: NITROGLYCERIN
  10. AMOXICILLIN [Concomitant]
     Active Substance: AMOXICILLIN
  11. HERBALS\SAW PALMETTO [Concomitant]
     Active Substance: HERBALS\SAW PALMETTO
  12. CAL-MAG-ZNC [Concomitant]
  13. FISH OIL [Concomitant]
     Active Substance: FISH OIL
  14. EATER-C [Concomitant]
  15. VITAMINS [Concomitant]
     Active Substance: VITAMINS
  16. VITAMIN B COMPLEX [Concomitant]
     Active Substance: CYANOCOBALAMIN\DEXPANTHENOL\NIACINAMIDE\PYRIDOXINE HYDROCHLORIDE\RIBOFLAVIN 5^-PHOSPHATE SODIUM\THIA
  17. OSTEO BI FLEX [Concomitant]
  18. TYLENOL [Concomitant]
     Active Substance: ACETAMINOPHEN
  19. PRILOSEC [Concomitant]
     Active Substance: OMEPRAZOLE MAGNESIUM

REACTIONS (10)
  - Cough [None]
  - Productive cough [None]
  - Rhinorrhoea [None]
  - Dysphonia [None]
  - Bronchitis [None]
  - Haemoptysis [None]
  - Nasal inflammation [None]
  - Pneumonia [None]
  - Decreased appetite [None]
  - Therapy cessation [None]

NARRATIVE: CASE EVENT DATE: 20211005
